FAERS Safety Report 25684876 (Version 1)
Quarter: 2025Q3

REPORT INFORMATION
  Report Type: Spontaneous
  Country: US (occurrence: US)
  Receive Date: 20250815
  Receipt Date: 20250815
  Transmission Date: 20251021
  Serious: Yes (Death, Other)
  Sender: AMGEN
  Company Number: US-AMGEN-USASP2025157904

PATIENT

DRUGS (2)
  1. RITUXIMAB [Suspect]
     Active Substance: RITUXIMAB
     Indication: Follicular lymphoma recurrent
     Route: 065
  2. RITUXIMAB [Suspect]
     Active Substance: RITUXIMAB
     Indication: Follicular lymphoma refractory

REACTIONS (10)
  - Follicular lymphoma recurrent [Fatal]
  - Clostridium colitis [Fatal]
  - COVID-19 pneumonia [Fatal]
  - Immune effector cell-associated neurotoxicity syndrome [Unknown]
  - Diffuse large B-cell lymphoma [Unknown]
  - Cytokine release syndrome [Unknown]
  - Neutropenia [Unknown]
  - Chronic obstructive pulmonary disease [Unknown]
  - Viral upper respiratory tract infection [Unknown]
  - Therapy partial responder [Unknown]
